FAERS Safety Report 4584215-8 (Version None)
Quarter: 2005Q1

REPORT INFORMATION
  Report Type: 
  Country: None (occurrence: None)
  Receive Date: 20050216
  Receipt Date: 20050202
  Transmission Date: 20050727
  Serious: Yes (Death)
  Sender: FDA-Public Use
  Company Number: DZ-GLAXOSMITHKLINE-B0370866A

PATIENT
  Age: 34 Year
  Sex: Male

DRUGS (2)
  1. SEREVENT [Suspect]
     Indication: ASTHMA
     Dosage: 2PUFF TWICE PER DAY
     Route: 055
     Dates: start: 20031201, end: 20041101
  2. BECOTIDE [Concomitant]
     Indication: ILL-DEFINED DISORDER
     Dosage: 500MCG TWICE PER DAY
     Route: 055
     Dates: start: 20030101, end: 20041101

REACTIONS (4)
  - CARDIAC FAILURE [None]
  - CHEST PAIN [None]
  - COMA [None]
  - ILL-DEFINED DISORDER [None]
